FAERS Safety Report 8806717 (Version 1)
Quarter: 2012Q4

REPORT INFORMATION
  Report Type: 
  Country: US (occurrence: US)
  Receive Date: 20120925
  Receipt Date: 20120925
  Transmission Date: 20130627
  Serious: No
  Sender: FDA-Public Use
  Company Number: US-009507513-1209USA006187

PATIENT
  Age: 50 Year
  Sex: Male

DRUGS (5)
  1. SAPHRIS [Suspect]
     Indication: SCHIZOPHRENIA
     Dosage: 5 mg, bid
     Route: 060
     Dates: start: 20120819, end: 20120823
  2. GABAPENTIN [Concomitant]
  3. ROPINIROLE [Concomitant]
  4. CYMBALTA [Concomitant]
  5. PRAZOSIN [Concomitant]

REACTIONS (6)
  - Nightmare [Recovering/Resolving]
  - Sleep terror [Recovering/Resolving]
  - Chromaturia [Recovering/Resolving]
  - Urinary tract infection [Recovering/Resolving]
  - Photophobia [Recovering/Resolving]
  - Migraine [Recovering/Resolving]
